FAERS Safety Report 12623112 (Version 2)
Quarter: 2016Q3

REPORT INFORMATION
  Report Type: Report from Study
  Country: US (occurrence: US)
  Receive Date: 20160804
  Receipt Date: 20160812
  Transmission Date: 20161109
  Serious: Yes (Hospitalization)
  Sender: FDA-Public Use
  Company Number: US-JNJFOC-20160801793

PATIENT
  Age: 65 Year
  Sex: Male
  Weight: 88.45 kg

DRUGS (2)
  1. USTEKINUMAB [Suspect]
     Active Substance: USTEKINUMAB
     Indication: PSORIASIS
     Route: 058
     Dates: start: 201405
  2. USTEKINUMAB [Suspect]
     Active Substance: USTEKINUMAB
     Indication: PSORIASIS
     Route: 058
     Dates: start: 201103, end: 201308

REACTIONS (3)
  - Hyperkalaemia [Recovered/Resolved]
  - Hip fracture [Not Recovered/Not Resolved]
  - Escherichia urinary tract infection [Recovered/Resolved]

NARRATIVE: CASE EVENT DATE: 20160606
